FAERS Safety Report 5003666-0 (Version None)
Quarter: 2006Q2

REPORT INFORMATION
  Report Type: 
  Country: None (occurrence: None)
  Receive Date: 20060511
  Receipt Date: 20060504
  Transmission Date: 20061013
  Serious: Yes (Other)
  Sender: FDA-Public Use
  Company Number: 2006-03-0920

PATIENT
  Age: 29 Year
  Sex: Female

DRUGS (5)
  1. BETAMETHASONE [Suspect]
     Indication: HERPES GESTATIONIS
     Dosage: TOP-DERM
     Route: 061
  2. PREDNISOLONE [Suspect]
     Indication: IMMUNOSUPPRESSION
     Dosage: SEE IMAGE
  3. POTASSIUM PERMANGANATE [Concomitant]
  4. .. [Concomitant]
  5. ERYTHROMYCIN [Concomitant]

REACTIONS (4)
  - DRUG EXPOSURE DURING PREGNANCY [None]
  - GESTATIONAL DIABETES [None]
  - HYPERGLYCAEMIA [None]
  - THERAPY NON-RESPONDER [None]
